FAERS Safety Report 7248597-0 (Version None)
Quarter: 2011Q1

REPORT INFORMATION
  Report Type: 
  Country: None (occurrence: None)
  Receive Date: 20110128
  Receipt Date: 20110103
  Transmission Date: 20110831
  Serious: Yes (Death)
  Sender: FDA-Public Use
  Company Number: US-BAYER-2011-001537

PATIENT
  Age: 57 Year
  Sex: Male

DRUGS (7)
  1. NAPROXEN SODIUM [Suspect]
     Route: 048
  2. IBUPROFEN [Suspect]
     Route: 048
  3. COLCHICINE [Suspect]
     Route: 048
  4. ACETAMINOPHEN [Suspect]
     Route: 048
  5. FENOFIBRATE [Suspect]
     Route: 048
  6. CHOLESTYRAMINE [Suspect]
     Route: 048
  7. ETHANOL [Suspect]
     Route: 048

REACTIONS (1)
  - TOXICITY TO VARIOUS AGENTS [None]
